FAERS Safety Report 10622650 (Version 1)
Quarter: 2014Q4

REPORT INFORMATION
  Report Type: Spontaneous
  Country: US (occurrence: None)
  Receive Date: 20141202
  Receipt Date: 20141202
  Transmission Date: 20150529
  Serious: Yes (Disabling)
  Sender: FDA-Public Use
  Company Number: None

PATIENT
  Age: 39 Year
  Sex: Female
  Weight: 65.32 kg

DRUGS (1)
  1. HUMIRA [Suspect]
     Active Substance: ADALIMUMAB
     Indication: PSORIASIS
     Dosage: 1 INJECTION EVERY 2 WEEKS
     Route: 058
     Dates: start: 20140604, end: 20141001

REACTIONS (12)
  - Myalgia [None]
  - Hypoaesthesia [None]
  - Pain in extremity [None]
  - Arthralgia [None]
  - Crying [None]
  - Insomnia [None]
  - Middle insomnia [None]
  - Musculoskeletal stiffness [None]
  - Antinuclear antibody increased [None]
  - Musculoskeletal pain [None]
  - Pain in jaw [None]
  - Photophobia [None]

NARRATIVE: CASE EVENT DATE: 20141007
